FAERS Safety Report 6902692-1 (Version None)
Quarter: 2010Q3

REPORT INFORMATION
  Report Type: 
  Country: None (occurrence: None)
  Receive Date: 20100803
  Receipt Date: 20080730
  Transmission Date: 20110219
  Serious: No
  Sender: FDA-Public Use
  Company Number: US-PFIZER INC-2008063658

PATIENT
  Sex: Female
  Weight: 56.8 kg

DRUGS (5)
  1. LYRICA [Suspect]
     Indication: TRIGEMINAL NEURALGIA
     Route: 048
     Dates: start: 20080620
  2. XANAX [Concomitant]
  3. REMERON [Concomitant]
  4. ATENOLOL [Concomitant]
  5. NEXIUM [Concomitant]

REACTIONS (7)
  - CONFUSIONAL STATE [None]
  - DIZZINESS [None]
  - HYPOAESTHESIA [None]
  - LETHARGY [None]
  - MIDDLE INSOMNIA [None]
  - PARAESTHESIA [None]
  - SOMNOLENCE [None]
